FAERS Safety Report 8411657-2 (Version None)
Quarter: 2012Q2

REPORT INFORMATION
  Report Type: 
  Country: None (occurrence: None)
  Receive Date: 20120605
  Receipt Date: 20120514
  Transmission Date: 20120825
  Serious: No
  Sender: FDA-Public Use
  Company Number: US-AMGEN-USASP2012030201

PATIENT
  Age: 44 Year
  Sex: Female

DRUGS (2)
  1. ANTIBIOTICS [Concomitant]
     Dosage: UNK
  2. ENBREL [Suspect]
     Indication: RHEUMATOID ARTHRITIS
     Dosage: 50 MG, QWK
     Dates: start: 20110718, end: 20120506

REACTIONS (5)
  - URINARY TRACT INFECTION [None]
  - ASTHMA [None]
  - NASOPHARYNGITIS [None]
  - BRONCHITIS [None]
  - FUNGAL INFECTION [None]
